FAERS Safety Report 8932811 (Version 1)
Quarter: 2012Q4

REPORT INFORMATION
  Report Type: Spontaneous
  Country: US (occurrence: None)
  Receive Date: 20121127
  Receipt Date: 20121127
  Transmission Date: 20130627
  Serious: Yes (Hospitalization)
  Sender: FDA-Public Use
  Company Number: None

PATIENT
  Age: 70 Year
  Sex: Male
  Weight: 56.25 kg

DRUGS (1)
  1. CABAZETAXEL [Suspect]
     Indication: ESOPHAGEAL CANCER
     Dosage: 31mg IV every 3wks
     Route: 042

REACTIONS (2)
  - Dyspnoea at rest [None]
  - Pleural effusion [None]
